FAERS Safety Report 11233683 (Version 1)
Quarter: 2015Q2

REPORT INFORMATION
  Report Type: Report from Study
  Country: US (occurrence: None)
  Receive Date: 20150630
  Receipt Date: 20150630
  Transmission Date: 20150821
  Serious: Yes (Hospitalization)
  Sender: FDA-Public Use
  Company Number: 2015AP010112

PATIENT
  Age: 28 Year
  Sex: Female
  Weight: 118 kg

DRUGS (2)
  1. FERRIPROX [Suspect]
     Active Substance: DEFERIPRONE
     Indication: SICKLE CELL ANAEMIA
     Route: 048
     Dates: start: 20120605, end: 20150528
  2. FERRIPROX [Suspect]
     Active Substance: DEFERIPRONE
     Indication: IRON OVERLOAD
     Route: 048
     Dates: start: 20120605, end: 20150528

REACTIONS (3)
  - Gastritis [None]
  - Sickle cell anaemia with crisis [None]
  - Pneumonia [None]

NARRATIVE: CASE EVENT DATE: 20150528
